FAERS Safety Report 19481412 (Version 2)
Quarter: 2021Q4

REPORT INFORMATION
  Report Type: Report from Study
  Country: US (occurrence: US)
  Receive Date: 20210701
  Receipt Date: 20211208
  Transmission Date: 20220303
  Serious: Yes (Hospitalization, Other)
  Sender: FDA-Public Use
  Company Number: US-SANOFI-00414549

PATIENT
  Age: 74 Year
  Sex: Male

DRUGS (2)
  1. DUPILUMAB [Suspect]
     Active Substance: DUPILUMAB
     Indication: Dermatitis allergic
     Dosage: 600 MG, 1X
     Route: 058
     Dates: start: 20201112, end: 20201112
  2. DUPILUMAB [Suspect]
     Active Substance: DUPILUMAB
     Dosage: 300 MG, QOW
     Route: 058
     Dates: start: 20201126

REACTIONS (9)
  - Atrial fibrillation [Unknown]
  - Dyspnoea [Unknown]
  - Blood glucose decreased [Unknown]
  - Cardiac valve disease [Unknown]
  - Pruritus [Unknown]
  - Rash macular [Recovered/Resolved with Sequelae]
  - Product use in unapproved indication [Unknown]
  - Product dose omission issue [Unknown]
  - Heart valve operation [Unknown]

NARRATIVE: CASE EVENT DATE: 20200101
